FAERS Safety Report 4932017-2 (Version None)
Quarter: 2006Q1

REPORT INFORMATION
  Report Type: 
  Country: None (occurrence: None)
  Receive Date: 20060303
  Receipt Date: 20060222
  Transmission Date: 20060701
  Serious: Yes (Other)
  Sender: FDA-Public Use
  Company Number: 2006JP000392

PATIENT
  Age: 48 Year
  Sex: Female

DRUGS (10)
  1. CEFAZOLIN SODIUM                   09 [Suspect]
     Route: 042
     Dates: start: 20060210, end: 20060215
  2. GENTACIN [Concomitant]
     Route: 065
     Dates: end: 20060215
  3. EPOGIN [Concomitant]
     Route: 065
     Dates: start: 20060210, end: 20060215
  4. UNASYN [Concomitant]
     Route: 065
     Dates: start: 20060215, end: 20060215
  5. LANSOPRAZOLE [Concomitant]
     Route: 065
  6. OLMETEC [Concomitant]
     Route: 065
  7. MUCODYNE [Concomitant]
     Route: 065
  8. MUCOSOLVAN [Concomitant]
     Route: 065
  9. PROTECADIN [Concomitant]
     Route: 065
  10. ALOSENN [Concomitant]
     Route: 065

REACTIONS (1)
  - CONVULSION [None]
